FAERS Safety Report 15129120 (Version 2)
Quarter: 2018Q3

REPORT INFORMATION
  Report Type: Spontaneous
  Country: US (occurrence: US)
  Receive Date: 20180711
  Receipt Date: 20180731
  Transmission Date: 20181010
  Serious: Yes (Hospitalization, Other)
  Sender: FDA-Public Use
  Company Number: US-B.I. PHARMACEUTICALS,INC./RIDGEFIELD-2018-BI-034885

PATIENT
  Age: 61 Year
  Sex: Female

DRUGS (1)
  1. SPIRIVA [Suspect]
     Active Substance: TIOTROPIUM BROMIDE MONOHYDRATE
     Indication: CHRONIC OBSTRUCTIVE PULMONARY DISEASE
     Dosage: 1 CAPSULE DAILY;  FORM STRENGTH: 18 MCG, ADMINISTRATION CORRECT? NO
     Route: 055

REACTIONS (9)
  - Eye disorder [Not Recovered/Not Resolved]
  - Hip fracture [Recovered/Resolved]
  - Intraocular pressure test [Not Recovered/Not Resolved]
  - Eye swelling [Not Recovered/Not Resolved]
  - Dyspnoea [Not Recovered/Not Resolved]
  - Brain neoplasm [Unknown]
  - Non-Hodgkin^s lymphoma [Unknown]
  - Product physical issue [Unknown]
  - Extra dose administered [Recovered/Resolved]

NARRATIVE: CASE EVENT DATE: 201709
